FAERS Safety Report 8788290 (Version 1)
Quarter: 2012Q4

REPORT INFORMATION
  Report Type: 
  Country: US (occurrence: US)
  Receive Date: 20120914
  Receipt Date: 20120914
  Transmission Date: 20130627
  Serious: No
  Sender: FDA-Public Use
  Company Number: US-VERTEX PHARMACEUTICAL INC.-AE-2012-011303

PATIENT
  Age: 59 None
  Sex: Male
  Weight: 95.46 kg

DRUGS (5)
  1. INCIVEK [Suspect]
     Indication: HEPATITIS C
     Route: 048
     Dates: start: 20120629
  2. RIBAVIRIN [Concomitant]
     Indication: HEPATITIS C
     Route: 048
     Dates: start: 20120629
  3. PEGASYS [Concomitant]
     Indication: HEPATITIS C
     Route: 058
     Dates: start: 20120629
  4. WELLBUTRIN [Concomitant]
  5. ATENOLOL [Concomitant]

REACTIONS (13)
  - Depression [Not Recovered/Not Resolved]
  - Confusional state [Unknown]
  - Nervousness [Not Recovered/Not Resolved]
  - Emotional disorder [Not Recovered/Not Resolved]
  - Crying [Not Recovered/Not Resolved]
  - Restlessness [Unknown]
  - Insomnia [Unknown]
  - Oedema peripheral [Recovered/Resolved]
  - Fatigue [Unknown]
  - Anaemia [Unknown]
  - Anal pruritus [Unknown]
  - Nausea [Recovered/Resolved]
  - Vomiting [Recovered/Resolved]
